FAERS Safety Report 18593839 (Version 1)
Quarter: 2020Q4

REPORT INFORMATION
  Report Type: Spontaneous
  Country: IN (occurrence: IN)
  Receive Date: 20201209
  Receipt Date: 20201209
  Transmission Date: 20210114
  Serious: Yes (Hospitalization, Other)
  Sender: FDA-Public Use
  Company Number: IN-GRANULES-IN-2020GRALIT00068

PATIENT
  Age: 62 Year
  Sex: Male

DRUGS (4)
  1. PREDNISOLONE. [Interacting]
     Active Substance: PREDNISOLONE
     Indication: RENAL CORTICAL NECROSIS
  2. PREDNISOLONE. [Interacting]
     Active Substance: PREDNISOLONE
     Indication: TUBULOINTERSTITIAL NEPHRITIS
     Route: 065
  3. LOSARTAN. [Concomitant]
     Active Substance: LOSARTAN
     Indication: BLOOD PRESSURE MEASUREMENT
     Route: 065
  4. NAPROXEN SODIUM. [Suspect]
     Active Substance: NAPROXEN SODIUM
     Indication: MIGRAINE
     Route: 065

REACTIONS (3)
  - Acute kidney injury [Unknown]
  - Renal cortical necrosis [Recovered/Resolved]
  - Tubulointerstitial nephritis [Recovered/Resolved]
